FAERS Safety Report 5984323-0 (Version None)
Quarter: 2008Q4

REPORT INFORMATION
  Report Type: 
  Country: None (occurrence: None)
  Receive Date: 20081208
  Receipt Date: 20081127
  Transmission Date: 20090506
  Serious: Yes (Hospitalization)
  Sender: FDA-Public Use
  Company Number: PHHY2008JP26594

PATIENT
  Age: 58 Year
  Sex: Female

DRUGS (5)
  1. NEORAL [Suspect]
     Indication: STILL'S DISEASE ADULT ONSET
     Dosage: 150 MG/DAY
     Route: 048
     Dates: start: 20080401
  2. NEORAL [Suspect]
     Dosage: UNK
     Route: 048
     Dates: start: 20080101
  3. PREDONINE [Suspect]
     Indication: STILL'S DISEASE ADULT ONSET
     Dosage: UNK
     Route: 048
  4. PREDONINE [Suspect]
     Dosage: UNK
     Route: 048
  5. STEROIDS NOS [Concomitant]

REACTIONS (7)
  - CONDITION AGGRAVATED [None]
  - CYTOKINE STORM [None]
  - CYTOMEGALOVIRUS INFECTION [None]
  - HEPATIC FUNCTION ABNORMAL [None]
  - PANCYTOPENIA [None]
  - SERUM FERRITIN INCREASED [None]
  - STILL'S DISEASE ADULT ONSET [None]
